FAERS Safety Report 9344139 (Version 1)
Quarter: 2013Q2

REPORT INFORMATION
  Report Type: Spontaneous
  Country: AU (occurrence: AU)
  Receive Date: 20130612
  Receipt Date: 20130612
  Transmission Date: 20140414
  Serious: Yes (Other)
  Sender: FDA-Public Use
  Company Number: AU-PFIZER INC-2012250656

PATIENT
  Sex: Female

DRUGS (4)
  1. PRISTIQ [Suspect]
     Dosage: 200 MG, UNK
     Route: 064
     Dates: start: 20090330, end: 20120924
  2. PRISTIQ [Suspect]
     Dosage: 150MG, 100MG
     Dates: end: 20121128
  3. MARIJUANA [Concomitant]
     Route: 064
  4. TOBACCO [Concomitant]

REACTIONS (3)
  - Feeding disorder neonatal [Unknown]
  - Maternal exposure timing unspecified [Unknown]
  - Weight gain poor [Unknown]
